FAERS Safety Report 8791409 (Version 1)
Quarter: 2012Q4

REPORT INFORMATION
  Report Type: Spontaneous
  Country: US (occurrence: None)
  Receive Date: 20120911
  Receipt Date: 20120911
  Transmission Date: 20130627
  Serious: No
  Sender: FDA-Public Use
  Company Number: VER-2012-00315

PATIENT

DRUGS (2)
  1. CYCLOSET [Suspect]
     Indication: DRUG USE FOR UNKNOWN INDICATION
     Route: 048
  2. UNSPECIFIED ANTIHYPERTENSIVE [Concomitant]

REACTIONS (1)
  - Hypotension [None]
